FAERS Safety Report 6568822-9 (Version None)
Quarter: 2010Q1

REPORT INFORMATION
  Report Type: 
  Country: None (occurrence: None)
  Receive Date: 20100203
  Receipt Date: 20090128
  Transmission Date: 20100710
  Serious: No
  Sender: FDA-Public Use
  Company Number: US-ABBOTT-09P-163-0500448-00

PATIENT
  Sex: Female
  Weight: 61.29 kg

DRUGS (1)
  1. TRICOR [Suspect]
     Indication: DRUG USE FOR UNKNOWN INDICATION
     Dosage: UNSURE OF STRENGTH

REACTIONS (3)
  - ERYTHEMA [None]
  - PRURITUS [None]
  - SWELLING [None]
